FAERS Safety Report 6433965 (Version 2)
Quarter: 2013Q4

REPORT INFORMATION
  Report Type: Spontaneous
  Country: US (occurrence: US)
  Receive Date: 20071003
  Receipt Date: 20131115
  Transmission Date: 20140711
  Serious: Yes (Hospitalization, Other)
  Sender: FDA-Public Use
  Company Number: US-ASTRAZENECA-2007AC01852

PATIENT
  Age: 30 Year
  Sex: Male

DRUGS (16)
  1. QUETIAPINE [Suspect]
     Route: 048
  2. QUETIAPINE [Suspect]
     Route: 048
  3. QUETIAPINE [Suspect]
     Route: 048
  4. ENALAPRIL [Concomitant]
  5. NPH INSULIN [Concomitant]
     Dosage: UNKNOWN DOSE AS NEEDED
  6. SLIDING SCALE REGULAR INSULIN [Concomitant]
     Dosage: UNKNOWN DOSE AS NEEDED
  7. LITHIUM [Concomitant]
  8. LITHIUM [Concomitant]
     Dosage: 900MG EACH MORNING AND 1200 MG AT NIGHT
  9. ALPRAZOLAM [Concomitant]
     Indication: AGITATION
  10. ALPRAZOLAM [Concomitant]
     Indication: ANXIETY
  11. ALPRAZOLAM [Concomitant]
     Indication: AGITATION
  12. ALPRAZOLAM [Concomitant]
     Indication: ANXIETY
  13. ZIPRASIDONE [Concomitant]
  14. ZIPRASIDONE [Concomitant]
  15. OLANZAPINE [Concomitant]
  16. OLANZAPINE [Concomitant]

REACTIONS (2)
  - Hepatic failure [Recovered/Resolved]
  - Cholestasis [Recovered/Resolved]
